FAERS Safety Report 24033571 (Version 2)
Quarter: 2024Q3

REPORT INFORMATION
  Report Type: Spontaneous
  Country: JP (occurrence: JP)
  Receive Date: 20240701
  Receipt Date: 20240724
  Transmission Date: 20241016
  Serious: Yes (Death, Hospitalization)
  Sender: EXELIXIS
  Company Number: JP-TAKEDA-2024TJP009624

PATIENT
  Age: 8 Decade
  Sex: Male

DRUGS (1)
  1. CABOMETYX [Suspect]
     Active Substance: CABOZANTINIB S-MALATE
     Indication: Renal cell carcinoma
     Dosage: UNK
     Route: 048
     Dates: start: 202404, end: 202406

REACTIONS (2)
  - Hypopituitarism [Not Recovered/Not Resolved]
  - Cardiovascular disorder [Fatal]

NARRATIVE: CASE EVENT DATE: 20240501
